FAERS Safety Report 7453873 (Version 4)
Quarter: 2014Q1

REPORT INFORMATION
  Report Type: Spontaneous
  Country: US (occurrence: US)
  Receive Date: 20100706
  Receipt Date: 20140127
  Transmission Date: 20141002
  Serious: Yes (Hospitalization)
  Sender: FDA-Public Use
  Company Number: US-BAYER-201026712NA

PATIENT
  Age: 28 Year
  Sex: Female
  Weight: 54.42 kg

DRUGS (4)
  1. YAZ [Suspect]
     Indication: CONTRACEPTION
     Route: 048
     Dates: start: 200110, end: 200712
  2. TYLENOL [Concomitant]
  3. IBUPROFEN [Concomitant]
  4. TORADOL [Concomitant]
     Indication: DYSMENORRHOEA
     Dosage: 10 MG (DAILY DOSE), PRN,

REACTIONS (7)
  - Cholelithiasis [None]
  - Cholecystitis acute [None]
  - Pancreatitis [Unknown]
  - Pain [None]
  - Pancreatic enzymes increased [Unknown]
  - Drug dependence [Unknown]
  - Sphincter of Oddi dysfunction [None]
